FAERS Safety Report 10205655 (Version 8)
Quarter: 2019Q1

REPORT INFORMATION
  Report Type: Spontaneous
  Country: US (occurrence: US)
  Receive Date: 20140529
  Receipt Date: 20190116
  Transmission Date: 20190417
  Serious: Yes (Death, Hospitalization)
  Sender: FDA-Public Use
  Company Number: US-JNJFOC-20140515563

PATIENT
  Age: 20 Year
  Sex: Female
  Weight: 110.68 kg

DRUGS (1)
  1. TYLENOL EXTRA STRENGTH [Suspect]
     Active Substance: ACETAMINOPHEN
     Indication: ABDOMINAL PAIN
     Dosage: 2 PILLS EVERY 4 HOURS??8 PILLS DAILY
     Route: 048
     Dates: start: 201203, end: 20120519

REACTIONS (10)
  - Respiratory failure [Unknown]
  - Acute hepatic failure [Fatal]
  - Toxicity to various agents [Fatal]
  - Pneumonia [Fatal]
  - Renal failure [Unknown]
  - Brain oedema [Fatal]
  - Encephalopathy [Unknown]
  - Coma [Unknown]
  - Hepatic necrosis [Fatal]
  - Acidosis [Unknown]

NARRATIVE: CASE EVENT DATE: 2012
